FAERS Safety Report 8208214-X (Version None)
Quarter: 2012Q1

REPORT INFORMATION
  Report Type: 
  Country: None (occurrence: None)
  Receive Date: 20120314
  Receipt Date: 20120309
  Transmission Date: 20120608
  Serious: Yes (Life-Threatening, Hospitalization, Other)
  Sender: FDA-Public Use
  Company Number: PHHY2012PT019753

PATIENT
  Age: 32 Year
  Sex: Female

DRUGS (7)
  1. TRICYCLIC ANTIDEPRESSANTS [Concomitant]
     Dosage: 25 MG, QHS
     Route: 048
  2. VICTAN [Concomitant]
     Route: 048
  3. MAGNESONA [Concomitant]
     Route: 048
  4. ZOLOFT [Concomitant]
     Dosage: 17 U, QD
     Route: 048
  5. ACUTIL FOSFORO [Concomitant]
     Route: 048
  6. GILENYA [Suspect]
     Indication: RELAPSING-REMITTING MULTIPLE SCLEROSIS
     Dosage: UNK UKN, UNK
     Route: 048
     Dates: start: 20120306, end: 20120306
  7. UNISEDIL [Concomitant]
     Dosage: 5 MG, UNK
     Route: 048

REACTIONS (1)
  - ELECTROCARDIOGRAM QT PROLONGED [None]
